FAERS Safety Report 15704112 (Version 2)
Quarter: 2018Q4

REPORT INFORMATION
  Report Type: Spontaneous
  Country: SI (occurrence: SI)
  Receive Date: 20181210
  Receipt Date: 20181217
  Transmission Date: 20190205
  Serious: Yes (Hospitalization)
  Sender: FDA-Public Use
  Company Number: PHHY2018SI173059

PATIENT
  Age: 81 Year
  Sex: Female

DRUGS (4)
  1. INDAPAMIDE. [Concomitant]
     Active Substance: INDAPAMIDE
     Indication: CARDIAC FAILURE CHRONIC
     Dosage: 1.5 MG, QD
     Route: 065
  2. FUROSEMIDE. [Suspect]
     Active Substance: FUROSEMIDE
     Dosage: 40 MG, QD
     Route: 065
  3. FUROSEMIDE. [Suspect]
     Active Substance: FUROSEMIDE
     Dosage: 1000 MG, QD
     Route: 041
  4. FUROSEMIDE. [Suspect]
     Active Substance: FUROSEMIDE
     Indication: NEPHROPATHY
     Dosage: 20 MG, QD
     Route: 065

REACTIONS (8)
  - Asphyxia [Recovered/Resolved]
  - Respiratory failure [Recovered/Resolved]
  - Hypercapnia [Recovered/Resolved]
  - Pneumonia [Recovered/Resolved]
  - Somnolence [Recovered/Resolved]
  - Metabolic alkalosis [Recovered/Resolved]
  - Hypoventilation [Recovered/Resolved]
  - Hyperventilation [Recovered/Resolved]
